FAERS Safety Report 13053286 (Version 2)
Quarter: 2016Q4

REPORT INFORMATION
  Report Type: Report from Study
  Country: US (occurrence: US)
  Receive Date: 20161222
  Receipt Date: 20161228
  Transmission Date: 20170207
  Serious: No
  Sender: FDA-Public Use
  Company Number: US-ASTRAZENECA-2016SE77525

PATIENT
  Sex: Male

DRUGS (10)
  1. ATORVASTATIN [Concomitant]
     Active Substance: ATORVASTATIN
  2. CITALOPRAM [Concomitant]
     Active Substance: CITALOPRAM HYDROBROMIDE
  3. TAMSULOSIN [Concomitant]
     Active Substance: TAMSULOSIN
  4. VITAMIN B12 [Concomitant]
     Active Substance: CYANOCOBALAMIN
  5. CLOPIDOGREL [Concomitant]
     Active Substance: CLOPIDOGREL BISULFATE
  6. IRESSA [Suspect]
     Active Substance: GEFITINIB
     Indication: LUNG CARCINOMA CELL TYPE UNSPECIFIED STAGE 0
     Route: 048
     Dates: start: 20160715
  7. VITAMIN D [Concomitant]
     Active Substance: CHOLECALCIFEROL
  8. LISINOPRIL. [Suspect]
     Active Substance: LISINOPRIL
     Route: 048
  9. FISH OIL [Concomitant]
     Active Substance: FISH OIL
  10. FAMOTIDINE. [Concomitant]
     Active Substance: FAMOTIDINE

REACTIONS (6)
  - Skin sensitisation [Unknown]
  - Vomiting [Unknown]
  - Pruritus [Unknown]
  - Rash [Unknown]
  - Haemorrhagic diathesis [Unknown]
  - Dyspepsia [Unknown]
